FAERS Safety Report 7849833-X (Version None)
Quarter: 2011Q4

REPORT INFORMATION
  Report Type: 
  Country: None (occurrence: None)
  Receive Date: 20111021
  Receipt Date: 20111011
  Transmission Date: 20120403
  Serious: Yes (Death)
  Sender: FDA-Public Use
  Company Number: 1075721

PATIENT
  Sex: Female

DRUGS (2)
  1. LIDOCAINE HCL [Suspect]
     Indication: SURGERY
  2. PROPOFOL [Suspect]
     Indication: SURGERY

REACTIONS (11)
  - TOXICITY TO VARIOUS AGENTS [None]
  - HYPOXIA [None]
  - MEDICATION ERROR [None]
  - DRUG INTERACTION [None]
  - PRODUCT QUALITY ISSUE [None]
  - WRONG TECHNIQUE IN DRUG USAGE PROCESS [None]
  - CONVULSION [None]
  - VOMITING [None]
  - CARDIAC ARREST [None]
  - ASPIRATION [None]
  - INCORRECT DRUG ADMINISTRATION RATE [None]
